FAERS Safety Report 9185611 (Version 1)
Quarter: 2013Q1

REPORT INFORMATION
  Report Type: Spontaneous
  Country: US (occurrence: None)
  Receive Date: 20120628
  Receipt Date: 20120628
  Transmission Date: 20140127
  Serious: Yes (Other)
  Sender: FDA-Public Use
  Company Number: PHEH2011US010030

PATIENT
  Age: 53 Year
  Sex: Female

DRUGS (2)
  1. RECLAST [Suspect]
     Indication: OSTEOPOROSIS
     Dates: start: 20111105
  2. VICODIN (HYDROCODONE BITARTRATE, PARACETAMOL) [Concomitant]

REACTIONS (8)
  - Uveitis [None]
  - Pain in jaw [None]
  - Influenza like illness [None]
  - Myalgia [None]
  - Ocular hyperaemia [None]
  - Eye inflammation [None]
  - Pain [None]
  - Pyrexia [None]
